FAERS Safety Report 9068752 (Version 1)
Quarter: 2013Q1

REPORT INFORMATION
  Report Type: Spontaneous
  Country: JP (occurrence: None)
  Receive Date: 20130122
  Receipt Date: 20130122
  Transmission Date: 20140127
  Serious: Yes (Hospitalization)
  Sender: FDA-Public Use
  Company Number: JP-010620

PATIENT
  Age: 86 Year
  Sex: Male

DRUGS (1)
  1. DEGARELIX (GONAX) [Suspect]
     Indication: PROSTATE CANCER
     Route: 058
     Dates: start: 201211

REACTIONS (2)
  - Restlessness [None]
  - Abnormal behaviour [None]
